FAERS Safety Report 6837531-0 (Version None)
Quarter: 2010Q3

REPORT INFORMATION
  Report Type: 
  Country: None (occurrence: None)
  Receive Date: 20100713
  Receipt Date: 20070515
  Transmission Date: 20110219
  Serious: No
  Sender: FDA-Public Use
  Company Number: US-PFIZER INC-2007039980

PATIENT
  Sex: Female
  Weight: 49.9 kg

DRUGS (7)
  1. CHANTIX [Suspect]
     Indication: SMOKING CESSATION THERAPY
     Dates: start: 20070427
  2. PREDNISONE [Concomitant]
  3. LEVAQUIN [Concomitant]
     Dates: end: 20070101
  4. ADVAIR DISKUS 100/50 [Concomitant]
  5. SPIRIVA [Concomitant]
  6. MONTELUKAST SODIUM [Concomitant]
  7. MUCINEX [Concomitant]

REACTIONS (1)
  - DYSGEUSIA [None]
